FAERS Safety Report 19406609 (Version 2)
Quarter: 2021Q3

REPORT INFORMATION
  Report Type: Report from Study
  Country: GB (occurrence: GB)
  Receive Date: 20210611
  Receipt Date: 20210826
  Transmission Date: 20211014
  Serious: Yes (Hospitalization)
  Sender: FDA-Public Use
  Company Number: GB-ROCHE-2843570

PATIENT
  Age: 74 Year
  Sex: Male

DRUGS (1)
  1. BEVACIZUMAB. [Suspect]
     Active Substance: BEVACIZUMAB
     Indication: PLEURAL MESOTHELIOMA MALIGNANT
     Dosage: ON 30/APR/2021 DATE OF LAST ADMINISTRATION BEFORE SAE
     Route: 042
     Dates: start: 20201116

REACTIONS (1)
  - Large intestinal obstruction [Unknown]

NARRATIVE: CASE EVENT DATE: 20210517
